FAERS Safety Report 24716302 (Version 1)
Quarter: 2024Q4

REPORT INFORMATION
  Report Type: Spontaneous
  Country: US (occurrence: US)
  Receive Date: 20241210
  Receipt Date: 20241210
  Transmission Date: 20250115
  Serious: Yes (Hospitalization, Other)
  Sender: NOVITIUM PHARMA
  Company Number: US-NOVITIUMPHARMA-2024USNVP02788

PATIENT
  Age: 49 Year
  Sex: Male

DRUGS (9)
  1. MELOXICAM [Suspect]
     Active Substance: MELOXICAM
     Indication: Pain in extremity
  2. Ascorbic-acid [Concomitant]
     Indication: Pain in extremity
  3. Chondroitin-sulfate [Concomitant]
     Indication: Pain in extremity
  4. COLLAGEN [Concomitant]
     Active Substance: COLLAGEN
     Indication: Pain in extremity
  5. Dimethyl-sulfone [Concomitant]
     Indication: Pain in extremity
  6. GLUCOSAMINE [Concomitant]
     Active Substance: GLUCOSAMINE
     Indication: Pain in extremity
  7. OMEGA-3 FATTY ACIDS [Concomitant]
     Active Substance: OMEGA-3 FATTY ACIDS
     Indication: Pain in extremity
  8. HERBALS\TURMERIC [Concomitant]
     Active Substance: HERBALS\TURMERIC
     Indication: Pain in extremity
  9. Urtica-dioica-extract [Concomitant]
     Indication: Pain in extremity

REACTIONS (1)
  - Glomerulonephritis membranous [Recovering/Resolving]
